FAERS Safety Report 19467651 (Version 1)
Quarter: 2021Q2

REPORT INFORMATION
  Report Type: Spontaneous
  Country: US (occurrence: US)
  Receive Date: 20210626
  Receipt Date: 20210626
  Transmission Date: 20210717
  Serious: Yes (Hospitalization)
  Sender: FDA-Public Use
  Company Number: None

PATIENT
  Sex: Female
  Weight: 88.45 kg

DRUGS (3)
  1. TAXOTERE [Suspect]
     Active Substance: DOCETAXEL
  2. HERCEPTIN [Concomitant]
     Active Substance: TRASTUZUMAB
  3. PERTUZUMAB. [Concomitant]
     Active Substance: PERTUZUMAB

REACTIONS (4)
  - Mastectomy [None]
  - Post procedural haematoma [None]
  - Chest wall haematoma [None]
  - Packed red blood cell transfusion [None]

NARRATIVE: CASE EVENT DATE: 20210624
